FAERS Safety Report 5315901-X (Version None)
Quarter: 2007Q2

REPORT INFORMATION
  Report Type: 
  Country: None (occurrence: None)
  Receive Date: 20070503
  Receipt Date: 20070501
  Transmission Date: 20071010
  Serious: Yes (Other)
  Sender: FDA-Public Use
  Company Number: HQWYE928101MAY07

PATIENT
  Sex: Female

DRUGS (2)
  1. PREMARIN [Suspect]
  2. PREMARIN [Suspect]

REACTIONS (2)
  - BLINDNESS [None]
  - VAGINAL HAEMORRHAGE [None]
